FAERS Safety Report 15603604 (Version 1)
Quarter: 2018Q4

REPORT INFORMATION
  Report Type: Spontaneous
  Country: US (occurrence: US)
  Receive Date: 20181109
  Receipt Date: 20181109
  Transmission Date: 20190205
  Serious: No
  Sender: FDA-Public Use
  Company Number: US-NORTHSTAR HEALTHCARE HOLDINGS-US-2017NSR000238

PATIENT
  Sex: Female

DRUGS (3)
  1. BACLOFEN. [Suspect]
     Active Substance: BACLOFEN
     Dosage: 10 MG, MIDAFTERNOON
     Route: 048
  2. BACLOFEN. [Suspect]
     Active Substance: BACLOFEN
     Indication: CEREBRAL PALSY
     Dosage: 20 MG, MORNING
     Route: 048
  3. BACLOFEN. [Suspect]
     Active Substance: BACLOFEN
     Dosage: 25 MG, NIGHT
     Route: 048

REACTIONS (1)
  - Incorrect route of product administration [Unknown]

NARRATIVE: CASE EVENT DATE: 2002
